FAERS Safety Report 8232808-9 (Version None)
Quarter: 2012Q1

REPORT INFORMATION
  Report Type: 
  Country: None (occurrence: None)
  Receive Date: 20120323
  Receipt Date: 20120312
  Transmission Date: 20120608
  Serious: Yes (Hospitalization)
  Sender: FDA-Public Use
  Company Number: US-AMGEN-USASP2012016490

PATIENT
  Age: 74 Year
  Sex: Male

DRUGS (3)
  1. ONDANSETRON [Concomitant]
     Indication: VOMITING
     Dosage: UNK
  2. SENSIPAR [Suspect]
     Indication: HYPERCALCAEMIA
     Dosage: 90 MG, BID
  3. PAMIDRONATE DISODIUM [Concomitant]
     Indication: HYPERCALCAEMIA
     Dosage: UNK

REACTIONS (10)
  - VOMITING [None]
  - DRUG INTOLERANCE [None]
  - HYPERCALCAEMIA [None]
  - URINARY RETENTION [None]
  - BLOOD CREATININE INCREASED [None]
  - CONDITION AGGRAVATED [None]
  - METASTASES TO BONE [None]
  - NECK MASS [None]
  - DECREASED APPETITE [None]
  - ASTHENIA [None]
